FAERS Safety Report 6800724-2 (Version None)
Quarter: 2010Q2

REPORT INFORMATION
  Report Type: 
  Country: None (occurrence: None)
  Receive Date: 20100623
  Receipt Date: 20100615
  Transmission Date: 20101027
  Serious: Yes (Other)
  Sender: FDA-Public Use
  Company Number: 2010SP033948

PATIENT
  Age: 75 Year
  Sex: Female

DRUGS (8)
  1. MIRTAZAPINE [Suspect]
     Indication: DEPRESSION
     Dosage: 15 MG; ONCE; PO
     Route: 048
     Dates: start: 20100608, end: 20100609
  2. AMLODIPINE BESILATE [Concomitant]
  3. CANDESARTAN CILEXETIL [Concomitant]
  4. WARFARIN POTASSIUM [Concomitant]
  5. METOPROLOL TARTRATE [Concomitant]
  6. MICORANDIL [Concomitant]
  7. PAXIL [Concomitant]
  8. DEPROMEL [Concomitant]

REACTIONS (9)
  - ABDOMINAL PAIN UPPER [None]
  - DIZZINESS [None]
  - DYSPNOEA [None]
  - HYPOAESTHESIA ORAL [None]
  - INCONTINENCE [None]
  - LIP OEDEMA [None]
  - MICTURITION DISORDER [None]
  - MOOD SWINGS [None]
  - SOMNOLENCE [None]
